FAERS Safety Report 20415601 (Version 1)
Quarter: 2022Q1

REPORT INFORMATION
  Report Type: Other
  Country: US (occurrence: None)
  Receive Date: 20220202
  Receipt Date: 20220202
  Transmission Date: 20220423
  Serious: No
  Sender: FDA-Public Use
  Company Number: US-ROCHE-3011779

PATIENT
  Age: 47 Year
  Sex: Female
  Weight: 83.990 kg

DRUGS (4)
  1. OCREVUS [Suspect]
     Active Substance: OCRELIZUMAB
     Indication: Multiple sclerosis
     Route: 065
  2. COVID-19 VACCINE [Concomitant]
     Dates: start: 20210326
  3. COVID-19 VACCINE [Concomitant]
     Dates: start: 20210423
  4. COVID-19 VACCINE [Concomitant]
     Dates: start: 20210915

REACTIONS (2)
  - COVID-19 [Recovered/Resolved]
  - Immunodeficiency [Unknown]

NARRATIVE: CASE EVENT DATE: 20220104
